FAERS Safety Report 8541705-0 (Version None)
Quarter: 2012Q3

REPORT INFORMATION
  Report Type: 
  Country: None (occurrence: None)
  Receive Date: 20120726
  Receipt Date: 20120716
  Transmission Date: 20120928
  Serious: Yes (Other)
  Sender: FDA-Public Use
  Company Number: CHPA2012US014635

PATIENT
  Sex: Male

DRUGS (2)
  1. PHENYLEPHRINE HCL [Suspect]
     Indication: DYSPNOEA
     Dosage: 2 TO 3 SPRAYS, TID
     Route: 045
  2. AFRIN                              /00070002/ [Concomitant]
     Dosage: UNK, UNK
     Route: 045

REACTIONS (3)
  - DRUG DEPENDENCE [None]
  - OFF LABEL USE [None]
  - INCORRECT DRUG ADMINISTRATION DURATION [None]
